FAERS Safety Report 18097232 (Version 3)
Quarter: 2020Q3

REPORT INFORMATION
  Report Type: Report from Study
  Country: UA (occurrence: UA)
  Receive Date: 20200731
  Receipt Date: 20200824
  Transmission Date: 20201104
  Serious: Yes (Hospitalization)
  Sender: FDA-Public Use
  Company Number: UA-ROCHE-2649974

PATIENT
  Age: 59 Year
  Sex: Female
  Weight: 51.8 kg

DRUGS (21)
  1. PACLITAXEL. [Suspect]
     Active Substance: PACLITAXEL
     Indication: TRIPLE NEGATIVE BREAST CANCER
     Dosage: DATE OF MOST RECENT DOSE OF PACLITAXEL PRIOR TO AE AND SAE ONSET: 03/JUL/2020 AT 13:46
     Route: 042
     Dates: start: 20191010
  2. QUAMATEL [Concomitant]
     Active Substance: FAMOTIDINE
     Indication: PREMEDICATION
     Route: 042
     Dates: start: 20191010
  3. HEPTRAL [Concomitant]
     Active Substance: ADEMETIONINE
     Route: 042
     Dates: start: 20200429, end: 20200429
  4. ASCORUTIN [Concomitant]
     Active Substance: ASCORBIC ACID\RUTIN
     Indication: EPISTAXIS
     Route: 048
     Dates: start: 20191108
  5. CORVITOL [Concomitant]
     Active Substance: METOPROLOL
     Indication: CARDIOMYOPATHY
     Route: 048
     Dates: start: 20191001
  6. HEPTRAL [Concomitant]
     Active Substance: ADEMETIONINE
     Indication: HYPERBILIRUBINAEMIA
     Route: 042
     Dates: start: 20191010
  7. QUERCETIN [Concomitant]
     Active Substance: QUERCETIN
     Indication: AUTONOMIC NERVOUS SYSTEM IMBALANCE
  8. DIMEDROL [Concomitant]
     Active Substance: DIPHENHYDRAMINE
     Indication: PREMEDICATION
     Dates: start: 20191010
  9. ZARXIO [Concomitant]
     Active Substance: FILGRASTIM-SNDZ
     Indication: NEUTROPENIA
     Route: 058
     Dates: start: 20200508, end: 20200508
  10. LOPERAMIDE [Suspect]
     Active Substance: LOPERAMIDE
     Indication: TRIPLE NEGATIVE BREAST CANCER
     Dosage: DOSE OF LAST 2 MG LOPERAMIDE ADMINISTERED PRIOR TO AE/SAE ONSET: 30/OCT/2019?DATE OF MOST RECENT DOS
     Route: 048
     Dates: start: 20191010
  11. AEKOL [Concomitant]
     Indication: NAIL DYSTROPHY
     Route: 061
     Dates: start: 20200624
  12. IPATASERTIB. [Suspect]
     Active Substance: IPATASERTIB
     Indication: TRIPLE NEGATIVE BREAST CANCER
     Dosage: DATE OF MOST RECENT DOSE OF  IPATASERTIB PRIOR TO AE ONSET: 09/JUL/2020?DATE OF MOST RECENT DOSE OF
     Route: 048
     Dates: start: 20191010
  13. CORVITOL [Concomitant]
     Active Substance: METOPROLOL
     Indication: AUTONOMIC NERVOUS SYSTEM IMBALANCE
  14. QUERCETIN [Concomitant]
     Active Substance: QUERCETIN
     Indication: CARDIOMYOPATHY
     Route: 048
     Dates: start: 20191001
  15. DEXAMETHASONUM [Concomitant]
     Active Substance: DEXAMETHASONE
     Indication: PREMEDICATION
     Route: 042
     Dates: start: 20191010
  16. BERLITION [Concomitant]
     Route: 042
     Dates: start: 20200429, end: 20200429
  17. ZARXIO [Concomitant]
     Active Substance: FILGRASTIM-SNDZ
     Indication: LEUKOPENIA
  18. ATEZOLIZUMAB. [Suspect]
     Active Substance: ATEZOLIZUMAB
     Indication: TRIPLE NEGATIVE BREAST CANCER
     Dosage: DATE OF MOST RECENT DOSE OF 840 MG ATEZOLIZUMAB PRIOR TO AE ONSET: 03/JUN/2020 AT 11:34?DATE OF MOST
     Route: 041
     Dates: start: 20191010
  19. BERLITION [Concomitant]
     Indication: HYPERBILIRUBINAEMIA
     Route: 048
     Dates: start: 20191010
  20. MILDRONATE [Concomitant]
     Active Substance: MELDONIUM
     Route: 042
     Dates: start: 20191010
  21. ENTEROSGEL [Concomitant]
     Indication: DIARRHOEA
     Route: 048
     Dates: start: 20200505, end: 20200507

REACTIONS (1)
  - Tumour necrosis [Recovered/Resolved]

NARRATIVE: CASE EVENT DATE: 20200520
